FAERS Safety Report 8261569-2 (Version None)
Quarter: 2012Q2

REPORT INFORMATION
  Report Type: 
  Country: None (occurrence: None)
  Receive Date: 20120405
  Receipt Date: 20120402
  Transmission Date: 20120825
  Serious: Yes (Other)
  Sender: FDA-Public Use
  Company Number: CH-PFIZER INC-2012082652

PATIENT
  Age: 80 Year
  Sex: Male

DRUGS (3)
  1. SUTENT [Suspect]
     Indication: METASTATIC RENAL CELL CARCINOMA
     Dosage: 50 MG PER DAY, CYCLIC (4 WEEKS TREATMENT FOLLOWED BY 2 WEEKS OFF)
     Dates: start: 20100401
  2. SUTENT [Suspect]
     Dosage: 25 MG PER DAY, CYCLIC (4 WEEKS TREATMENT FOLLOWED BY 2 WEEKS OFF)
     Dates: start: 20100501, end: 20100101
  3. SUTENT [Suspect]
     Dosage: 12.5 MG PER DAY, CYCLIC (4 WEEKS TREATMENT FOLLOWED BY 2 WEEKS OFF)
     Dates: start: 20100601, end: 20100701

REACTIONS (1)
  - BONE MARROW FAILURE [None]
